FAERS Safety Report 6126660-5 (Version None)
Quarter: 2009Q1

REPORT INFORMATION
  Report Type: 
  Country: None (occurrence: None)
  Receive Date: 20090320
  Receipt Date: 20090310
  Transmission Date: 20090719
  Serious: Yes (Death)
  Sender: FDA-Public Use
  Company Number: NL-PFIZER INC-2005080773

PATIENT

DRUGS (5)
  1. LYRICA [Suspect]
     Indication: NEUROPATHY PERIPHERAL
     Route: 048
     Dates: start: 20050504, end: 20050510
  2. ELTROXIN [Concomitant]
     Dosage: 0.1 MG, 1X/DAY
     Route: 048
     Dates: end: 20050510
  3. IMIPRAMINE [Concomitant]
     Dosage: 10 MG, 2X/DAY
     Route: 048
     Dates: start: 20050419, end: 20050510
  4. SERENASE [Concomitant]
     Dosage: 2 MG, 1X/DAY
     Route: 048
     Dates: start: 20050210, end: 20050510
  5. DURAGESIC-100 [Concomitant]
     Dosage: 50 UG, 1X/DAY
     Route: 048
     Dates: start: 20050310, end: 20050510

REACTIONS (1)
  - DEATH [None]
